FAERS Safety Report 10007385 (Version 1)
Quarter: 2014Q1

REPORT INFORMATION
  Report Type: Spontaneous
  Country: TN (occurrence: None)
  Receive Date: 20140311
  Receipt Date: 20140311
  Transmission Date: 20141002
  Serious: Yes (Hospitalization)
  Sender: FDA-Public Use
  Company Number: CAPT20140001

PATIENT
  Age: 59 Year
  Sex: Female

DRUGS (3)
  1. CAPTOPRIL [Suspect]
     Indication: HYPERTENSION
     Route: 048
  2. FUROSEMIDE [Concomitant]
  3. ACEBUTOLOL [Concomitant]

REACTIONS (2)
  - Drug hypersensitivity [None]
  - Drug reaction with eosinophilia and systemic symptoms [None]
